FAERS Safety Report 21129299 (Version 1)
Quarter: 2022Q3

REPORT INFORMATION
  Report Type: Report from Study
  Country: None (occurrence: FR)
  Receive Date: 20220725
  Receipt Date: 20220725
  Transmission Date: 20221026
  Serious: Yes (Other)
  Sender: FDA-Public Use
  Company Number: FR-Ascend Therapeutics US, LLC-2131223

PATIENT
  Age: 45 Year
  Sex: Female

DRUGS (3)
  1. ESTROGEL [Suspect]
     Active Substance: ESTRADIOL
     Indication: Gender reassignment therapy
     Route: 065
  2. ESTROGEL [Suspect]
     Active Substance: ESTRADIOL
  3. ESTRADIOL [Suspect]
     Active Substance: ESTRADIOL
     Route: 065

REACTIONS (5)
  - Malignant hypertension [Recovered/Resolved]
  - Hyperaldosteronism [Recovered/Resolved]
  - Macular oedema [Recovered/Resolved]
  - Atrioventricular block [Recovered/Resolved]
  - Off label use [None]
